FAERS Safety Report 25488197 (Version 1)
Quarter: 2025Q2

REPORT INFORMATION
  Report Type: Spontaneous
  Country: US (occurrence: US)
  Receive Date: 20250627
  Receipt Date: 20250627
  Transmission Date: 20250717
  Serious: No
  Sender: CHATTEM
  Company Number: US-OPELLA-2025OHG019047

PATIENT
  Age: 55 Year
  Sex: Female

DRUGS (1)
  1. NICODERM CQ [Suspect]
     Active Substance: NICOTINE
     Indication: Product used for unknown indication
     Route: 061
     Dates: start: 20250609, end: 20250610

REACTIONS (1)
  - Application site burn [Not Recovered/Not Resolved]

NARRATIVE: CASE EVENT DATE: 20250610
